FAERS Safety Report 8709606 (Version 6)
Quarter: 2013Q3

REPORT INFORMATION
  Report Type: Spontaneous
  Country: US (occurrence: US)
  Receive Date: 20120806
  Receipt Date: 20130930
  Transmission Date: 20140515
  Serious: Yes (Hospitalization)
  Sender: FDA-Public Use
  Company Number: US-GLAXOSMITHKLINE-A0988178A

PATIENT
  Age: 57 Year
  Sex: Male
  Weight: 143.2 kg

DRUGS (2)
  1. AVANDIA [Suspect]
     Indication: DIABETES MELLITUS
     Dosage: 8MG TWICE PER DAY
     Route: 048
     Dates: start: 2000, end: 2010
  2. AVANDAMET [Suspect]
     Indication: TYPE 2 DIABETES MELLITUS
     Route: 048

REACTIONS (9)
  - Pancreatitis [Recovering/Resolving]
  - Weight increased [Unknown]
  - Swelling [Unknown]
  - Vision blurred [Unknown]
  - Dyspnoea [Unknown]
  - Erectile dysfunction [Unknown]
  - Gastrointestinal disorder [Unknown]
  - Fluid retention [Unknown]
  - Sleep disorder [Unknown]
